FAERS Safety Report 4439772-9 (Version None)
Quarter: 2004Q3

REPORT INFORMATION
  Report Type: 
  Country: None (occurrence: None)
  Receive Date: 20040831
  Receipt Date: 20040818
  Transmission Date: 20050211
  Serious: Yes (Hospitalization, Other)
  Sender: FDA-Public Use
  Company Number: 2004053175

PATIENT
  Age: 78 Year
  Sex: Male
  Weight: 60 kg

DRUGS (14)
  1. FLUCAM (AMPIROXICAM) [Suspect]
     Indication: OEDEMA PERIPHERAL
     Dosage: 27 MG (27 MG), ORAL
     Route: 048
     Dates: start: 20040626, end: 20040705
  2. FLUCAM (AMPIROXICAM) [Suspect]
     Indication: PAIN IN EXTREMITY
     Dosage: 27 MG (27 MG), ORAL
     Route: 048
     Dates: start: 20040626, end: 20040705
  3. ALOSENN (ACHILLEA, RUBIA ROOT TINCTURE, SENNA FRUIT, SENNA LEAF, TARAX [Concomitant]
  4. CALCIUM POLYSTYRENE SULFONATE (CALCIUM POLYSTYRENE SULFONATE) [Concomitant]
  5. ALUMINIUM HYDROXIDE GEL, DRIED (ALUMINIUM HYDROXIDE GEL, DRIED) [Concomitant]
  6. NIFEDIPINE [Concomitant]
  7. AMEZINIUM METILSULFATE (AMEZINIUM METILSULFATE) [Concomitant]
  8. CALCIUM CARBONATE (CALCIUM CARBONATE) [Concomitant]
  9. ALL OTHER THERAPEUTIC PRODUCTS (ALL OTHER THERAPEUTIC PRODUCTS) [Concomitant]
  10. LOXOPROFEN SODIUM (LOXOPROFEN SODIUM) [Concomitant]
  11. REBAMIPIDE (REBAMIPIDE) [Concomitant]
  12. HACHIAZULE (SODIUM BICARBONATE, SODIUM GUALENATE) [Concomitant]
  13. KETOPROFEN [Concomitant]
  14. AMOROLFINE (AMOROLFINE) [Concomitant]

REACTIONS (2)
  - EOSINOPHILIA [None]
  - NEURILEMMOMA [None]
